FAERS Safety Report 19447338 (Version 1)
Quarter: 2021Q2

REPORT INFORMATION
  Report Type: Spontaneous
  Country: US (occurrence: US)
  Receive Date: 20210621
  Receipt Date: 20210621
  Transmission Date: 20210717
  Serious: Yes (Disabling)
  Sender: FDA-Public Use
  Company Number: None

PATIENT
  Age: 45 Year
  Sex: Female
  Weight: 57 kg

DRUGS (4)
  1. ELETRIPTAN. [Concomitant]
     Active Substance: ELETRIPTAN
     Dates: start: 20180801
  2. AIMOVIG (ERENUMAB) [Suspect]
     Active Substance: ERENUMAB
     Indication: MIGRAINE
     Dosage: ?          OTHER FREQUENCY:MONTHLY;?
     Route: 058
     Dates: start: 20200915
  3. OMEPRAZOLE. [Concomitant]
     Active Substance: OMEPRAZOLE
     Dates: start: 20180101
  4. BOTOX [Concomitant]
     Active Substance: ONABOTULINUMTOXINA
     Dates: start: 20180801

REACTIONS (1)
  - Myelitis transverse [None]

NARRATIVE: CASE EVENT DATE: 20210213
